FAERS Safety Report 25416290 (Version 1)
Quarter: 2025Q2

REPORT INFORMATION
  Report Type: Spontaneous
  Country: GR (occurrence: GR)
  Receive Date: 20250610
  Receipt Date: 20250610
  Transmission Date: 20250716
  Serious: Yes (Other)
  Sender: REGENERON
  Company Number: GR-REGENERON PHARMACEUTICALS, INC.-2025-092216

PATIENT
  Sex: Male

DRUGS (1)
  1. LIBTAYO [Suspect]
     Active Substance: CEMIPLIMAB-RWLC
     Indication: Metastatic squamous cell carcinoma

REACTIONS (1)
  - Lymphocytic leukaemia [Not Recovered/Not Resolved]
